FAERS Safety Report 9228206 (Version 2)
Quarter: 2013Q2

REPORT INFORMATION
  Report Type: Report from Study
  Country: IT (occurrence: IT)
  Receive Date: 20130412
  Receipt Date: 20130619
  Transmission Date: 20140414
  Serious: Yes (Other)
  Sender: FDA-Public Use
  Company Number: IT-ROCHE-1210480

PATIENT
  Sex: 0

DRUGS (5)
  1. ALTEPLASE [Suspect]
     Indication: ACUTE MYOCARDIAL INFARCTION
     Dosage: SINGLE BOLUS
     Route: 065
  2. ASPIRIN [Suspect]
     Indication: ACUTE MYOCARDIAL INFARCTION
     Route: 065
  3. CLOPIDOGREL [Suspect]
     Indication: ACUTE MYOCARDIAL INFARCTION
     Dosage: LOADING DOSE
     Route: 065
  4. ABCIXIMAB [Suspect]
     Indication: ACUTE MYOCARDIAL INFARCTION
     Dosage: 0.25 MG/KG FOLLOWED BY 0.125 MCG/KG/MIN 12-HR INFUSION
     Route: 065
  5. HEPARIN [Suspect]
     Indication: ACUTE MYOCARDIAL INFARCTION
     Route: 065

REACTIONS (1)
  - Coronary artery bypass [Unknown]
